FAERS Safety Report 7802655-8 (Version None)
Quarter: 2011Q4

REPORT INFORMATION
  Report Type: 
  Country: None (occurrence: None)
  Receive Date: 20111007
  Receipt Date: 20110929
  Transmission Date: 20120403
  Serious: Yes (Other)
  Sender: FDA-Public Use
  Company Number: PHHY2010ZA71120

PATIENT
  Age: 68 Year
  Sex: Female

DRUGS (1)
  1. ZOLEDRONOC ACID [Suspect]
     Dosage: 5 MG/100ML
     Route: 042
     Dates: start: 20090101

REACTIONS (8)
  - BONE PAIN [None]
  - BACK PAIN [None]
  - BONE DENSITY DECREASED [None]
  - ARTHRALGIA [None]
  - FACIAL PAIN [None]
  - NEURALGIA [None]
  - PAIN [None]
  - PAIN IN EXTREMITY [None]
